FAERS Safety Report 9074966 (Version 1)
Quarter: 2013Q1

REPORT INFORMATION
  Report Type: Report from Study
  Country: US (occurrence: US)
  Receive Date: 20130131
  Receipt Date: 20130131
  Transmission Date: 20140127
  Serious: No
  Sender: FDA-Public Use
  Company Number: US-ABBOTT-12P-163-1005489-00

PATIENT
  Sex: Female
  Weight: 98.06 kg

DRUGS (2)
  1. HUMIRA [Suspect]
     Indication: PSORIASIS
     Route: 058
     Dates: start: 2011, end: 201206
  2. HUMIRA [Suspect]
     Route: 058
     Dates: start: 20121024

REACTIONS (1)
  - Psoriasis [Unknown]
